FAERS Safety Report 20296401 (Version 1)
Quarter: 2022Q1

REPORT INFORMATION
  Report Type: Report from Study
  Country: US (occurrence: US)
  Receive Date: 20220105
  Receipt Date: 20220105
  Transmission Date: 20220423
  Serious: Yes (Death, Other)
  Sender: FDA-Public Use
  Company Number: US-CIPLA LTD.-2021US08462

PATIENT

DRUGS (3)
  1. AZACITIDINE [Suspect]
     Active Substance: AZACITIDINE
     Indication: Acute myeloid leukaemia
     Dosage: 75MG/M2 FROM DAYS 1-7
     Route: 065
  2. TAGRAXOFUSP [Suspect]
     Active Substance: TAGRAXOFUSP
     Indication: Acute myeloid leukaemia
     Dosage: 7, 9 OR 12 ?G/KG ON DAYS 4-6
     Route: 065
  3. VENETOCLAX [Suspect]
     Active Substance: VENETOCLAX
     Indication: Acute myeloid leukaemia
     Dosage: 400 MG FROM D1-21, RAMP UP D1-3 IN CYCLE 1
     Route: 065

REACTIONS (4)
  - Death [Fatal]
  - Capillary leak syndrome [Fatal]
  - Multiple organ dysfunction syndrome [Fatal]
  - Tumour lysis syndrome [Fatal]
